FAERS Safety Report 15884071 (Version 2)
Quarter: 2019Q2

REPORT INFORMATION
  Report Type: Spontaneous
  Country: JP (occurrence: JP)
  Receive Date: 20190129
  Receipt Date: 20190401
  Transmission Date: 20190711
  Serious: Yes (Life-Threatening, Hospitalization, Other)
  Sender: FDA-Public Use
  Company Number: JP-BAUSCH-BL-2019-002393

PATIENT
  Age: 66 Year
  Sex: Female

DRUGS (13)
  1. CYCLOPHOSPHAMIDE. [Suspect]
     Active Substance: CYCLOPHOSPHAMIDE
     Dosage: HIGH-DOSE CYCLOPHOSPHAMIDE
     Route: 065
  2. DOXORUBICIN [Suspect]
     Active Substance: DOXORUBICIN
     Indication: PLASMA CELL MYELOMA
     Dosage: 25 MG/M2 ON DAY 1
     Route: 065
  3. CYCLOPHOSPHAMIDE. [Suspect]
     Active Substance: CYCLOPHOSPHAMIDE
     Dosage: SALVAGE VCAP THERAPY CYCLOPHOSPHAMIDE 100 MG/BODY ON DAYS 1-4; CYCLICAL
     Route: 065
  4. CYCLOPHOSPHAMIDE. [Suspect]
     Active Substance: CYCLOPHOSPHAMIDE
     Indication: PLASMA CELL MYELOMA
     Dosage: 400 MG/BODY (CBD THERAPY - ON DAYS 1, 8, 15, AND 22 OF EACH 28-DAY CYCLE); INTERVAL
     Route: 065
  5. VINCRISTINE [Suspect]
     Active Substance: VINCRISTINE
     Indication: PLASMA CELL MYELOMA
     Dosage: VINCRISTINE 1 MG/BODY ON DAY 1;CYCLICAL
     Route: 065
  6. PREDNISOLONE. [Suspect]
     Active Substance: PREDNISOLONE
     Indication: PLASMA CELL MYELOMA
     Dosage: SALVAGE VCAP THERAPY PREDNISOLONE 60 MG/M2 ON DAYS 1-4 OF EACH 21-DAY CYCLE; CYCLICAL
     Route: 065
  7. LENALIDOMIDE [Suspect]
     Active Substance: LENALIDOMIDE
     Indication: PLASMA CELL MYELOMA
     Dosage: 4 MG ON DAYS 1-21; INTERVAL
     Route: 065
  8. MELPHALAN. [Suspect]
     Active Substance: MELPHALAN
     Indication: PLASMA CELL MYELOMA
     Dosage: HIGH-DOSE MELPHALAN
     Route: 065
  9. DEXAMETHASONE. [Suspect]
     Active Substance: DEXAMETHASONE
     Dosage: DEX 40 MG ON DAYS 1, 8, 15, AND 22 OF EACH 28-DAY CYCLE)
     Route: 065
  10. DEXAMETHASONE. [Suspect]
     Active Substance: DEXAMETHASONE
     Dosage: (DEX 20 MG ON DAYS 1, 8,15, AND 22); CYCLICAL
     Route: 065
  11. DEXAMETHASONE. [Suspect]
     Active Substance: DEXAMETHASONE
     Indication: PLASMA CELL MYELOMA
     Dosage: (CBD THERAPY - ON DAYS 1, 8, 15, AND 22 OF EACH 28-DAY CYCLE); CYCLICAL
     Route: 065
  12. POMALIDOMIDE [Suspect]
     Active Substance: POMALIDOMIDE
     Indication: PLASMA CELL MYELOMA
     Dosage: CYCLICAL; POMALIDOMIDE 4MG ON DAYS 1-21
     Route: 065
  13. BORTEZOMIB. [Suspect]
     Active Substance: BORTEZOMIB
     Indication: PLASMA CELL MYELOMA
     Dosage: (CBD THERAPY - ON DAYS 1, 8, 15, AND 22 OF EACH 28-DAY CYCLE), CYCLICAL
     Route: 065

REACTIONS (8)
  - Adenoviral haemorrhagic cystitis [Recovered/Resolved]
  - Urinary tract infection [Recovered/Resolved]
  - Hepatic function abnormal [Recovered/Resolved]
  - Pathogen resistance [Recovered/Resolved]
  - Urethritis [Recovered/Resolved]
  - Cytomegalovirus infection [Unknown]
  - Escherichia infection [Recovered/Resolved]
  - Peritonitis viral [Recovered/Resolved]
